FAERS Safety Report 17584583 (Version 1)
Quarter: 2020Q1

REPORT INFORMATION
  Report Type: Spontaneous
  Country: US (occurrence: US)
  Receive Date: 20200323
  Receipt Date: 20200323
  Transmission Date: 20200409
  Serious: Yes (Hospitalization)
  Sender: FDA-Public Use
  Company Number: None

PATIENT
  Age: 61 Year
  Sex: Female

DRUGS (31)
  1. FUROSEMIDE. [Concomitant]
     Active Substance: FUROSEMIDE
  2. CELECOXIB. [Concomitant]
     Active Substance: CELECOXIB
  3. AZITHROMYCIN ANHYDROUS. [Concomitant]
     Active Substance: AZITHROMYCIN ANHYDROUS
  4. CYCLOBENZAPR [Concomitant]
     Active Substance: CYCLOBENZAPRINE
  5. DICLOFENAC [Concomitant]
     Active Substance: DICLOFENAC
  6. NITROFUR MAC [Concomitant]
     Active Substance: NITROFURANTOIN
  7. PULMICORT TURBUHALER [Concomitant]
     Active Substance: BUDESONIDE
  8. ROSUVASTATIN. [Concomitant]
     Active Substance: ROSUVASTATIN
  9. METHYLPRED [Concomitant]
     Active Substance: METHYLPREDNISOLONE
  10. MONTELUKAST [Concomitant]
     Active Substance: MONTELUKAST SODIUM
  11. NIFEDIPINE. [Concomitant]
     Active Substance: NIFEDIPINE
  12. FLUCONAZOLE. [Concomitant]
     Active Substance: FLUCONAZOLE
  13. METOLAZONE. [Concomitant]
     Active Substance: METOLAZONE
  14. PANTOPRAZOLE [Concomitant]
     Active Substance: PANTOPRAZOLE
  15. ASMANEX 60 AER [Concomitant]
  16. SMZ/TMP DS [Concomitant]
     Active Substance: SULFAMETHOXAZOLE\TRIMETHOPRIM
  17. CALCITRIOL. [Concomitant]
     Active Substance: CALCITRIOL
  18. ORENCIA [Concomitant]
     Active Substance: ABATACEPT
  19. PREDNISONE. [Concomitant]
     Active Substance: PREDNISONE
  20. SILDENAFIL 20MG TAB [Suspect]
     Active Substance: SILDENAFIL
     Indication: PULMONARY ARTERIAL HYPERTENSION
     Dosage: ?          OTHER DOSE:4 TABS;?
     Route: 048
     Dates: start: 20190724
  21. ATORVASTATIN [Concomitant]
     Active Substance: ATORVASTATIN
  22. METOPROL TAR [Concomitant]
  23. POT CHLORIDE [Concomitant]
     Active Substance: POTASSIUM CHLORIDE
  24. PROAIR HFA AER [Concomitant]
  25. SULFASALAZINE DELAYED-RELEASE [Concomitant]
     Active Substance: SULFASALAZINE
  26. TRAMADOL HCL [Concomitant]
     Active Substance: TRAMADOL HYDROCHLORIDE
  27. FOLIC ACID. [Concomitant]
     Active Substance: FOLIC ACID
  28. GABAPENTIN. [Concomitant]
     Active Substance: GABAPENTIN
  29. METHOTREXATE. [Concomitant]
     Active Substance: METHOTREXATE
  30. OSELTAMVIR [Concomitant]
     Active Substance: OSELTAMIVIR
  31. SEREVENT DIS AER [Concomitant]

REACTIONS (1)
  - Influenza [None]

NARRATIVE: CASE EVENT DATE: 20200104
